FAERS Safety Report 21885802 (Version 2)
Quarter: 2023Q1

REPORT INFORMATION
  Report Type: Report from Study
  Country: US (occurrence: US)
  Receive Date: 20230119
  Receipt Date: 20230316
  Transmission Date: 20230418
  Serious: Yes (Hospitalization, Other)
  Sender: FDA-Public Use
  Company Number: US-HORIZON THERAPEUTICS-HZN-2021-006931

PATIENT

DRUGS (8)
  1. ACTIMMUNE [Suspect]
     Active Substance: INTERFERON GAMMA-1B
     Indication: Chronic granulomatous disease
     Dosage: 50 UG
     Route: 058
     Dates: start: 20210910
  2. ACTIMMUNE [Suspect]
     Active Substance: INTERFERON GAMMA-1B
     Indication: Neutrophil function disorder
     Dosage: 50 UG
     Route: 058
     Dates: start: 20210917
  3. ACTIMMUNE [Suspect]
     Active Substance: INTERFERON GAMMA-1B
     Dosage: 50 UG
     Route: 058
     Dates: start: 20211020
  4. ACTIMMUNE [Suspect]
     Active Substance: INTERFERON GAMMA-1B
     Dosage: 60 UG
     Route: 058
     Dates: start: 20220926
  5. COVID-19 VACCINE [Concomitant]
     Indication: Prophylaxis
     Dosage: FIRST DOSE
  6. COVID-19 VACCINE [Concomitant]
     Dosage: SECOND DOSE
     Dates: start: 20220107
  7. CEPHRADINE [Concomitant]
     Active Substance: CEPHRADINE
     Route: 042
  8. RIFAMPIN [Concomitant]
     Active Substance: RIFAMPIN
     Route: 048

REACTIONS (14)
  - Pyrexia [Recovered/Resolved]
  - Injection site bruising [Unknown]
  - Nausea [Unknown]
  - Vomiting [Unknown]
  - Weight decreased [Recovering/Resolving]
  - Liver abscess [Recovered/Resolved]
  - Faecal calprotectin increased [Unknown]
  - Bone marrow disorder [Unknown]
  - Cyst [Unknown]
  - COVID-19 [Unknown]
  - Tooth loss [Recovering/Resolving]
  - Inappropriate schedule of product administration [Unknown]
  - Asthenia [Unknown]
  - Pyrexia [Unknown]

NARRATIVE: CASE EVENT DATE: 20210910
